FAERS Safety Report 10289944 (Version 1)
Quarter: 2014Q3

REPORT INFORMATION
  Report Type: Spontaneous
  Country: GB (occurrence: GB)
  Receive Date: 20140710
  Receipt Date: 20140710
  Transmission Date: 20150326
  Serious: Yes (Other)
  Sender: FDA-Public Use
  Company Number: GB-009507513-1407GBR004287

PATIENT
  Age: 21 Year
  Sex: Male
  Weight: 76.2 kg

DRUGS (1)
  1. FINASTERIDE. [Suspect]
     Active Substance: FINASTERIDE
     Indication: ANDROGENETIC ALOPECIA
     Dosage: 0.3 MG, QD
     Route: 048
     Dates: start: 20100101, end: 20100301

REACTIONS (3)
  - Premature ageing [Not Recovered/Not Resolved]
  - Fat redistribution [Not Recovered/Not Resolved]
  - Collagen disorder [Not Recovered/Not Resolved]
